FAERS Safety Report 15313104 (Version 1)
Quarter: 2018Q3

REPORT INFORMATION
  Report Type: Spontaneous
  Country: RU (occurrence: RU)
  Receive Date: 20180823
  Receipt Date: 20180823
  Transmission Date: 20181010
  Serious: Yes (Disabling)
  Sender: FDA-Public Use
  Company Number: RU-B.I. PHARMACEUTICALS,INC./RIDGEFIELD-2018-BI-041563

PATIENT
  Age: 90 Year
  Sex: Male

DRUGS (2)
  1. MIRAPEX [Suspect]
     Active Substance: PRAMIPEXOLE DIHYDROCHLORIDE
     Indication: RESTLESS LEGS SYNDROME
     Route: 048
     Dates: start: 20180802, end: 20180815
  2. VENORUTON [Concomitant]
     Active Substance: TROXERUTIN
     Indication: PRODUCT USED FOR UNKNOWN INDICATION
     Route: 061

REACTIONS (3)
  - Dizziness [Not Recovered/Not Resolved]
  - Hyposomnia [Not Recovered/Not Resolved]
  - Visual impairment [Not Recovered/Not Resolved]

NARRATIVE: CASE EVENT DATE: 20180809
